FAERS Safety Report 6062722-9 (Version None)
Quarter: 2009Q1

REPORT INFORMATION
  Report Type: 
  Country: None (occurrence: None)
  Receive Date: 20090202
  Receipt Date: 20090202
  Transmission Date: 20090719
  Serious: No
  Sender: FDA-Public Use
  Company Number: None

PATIENT
  Age: 51 Year
  Sex: Female
  Weight: 65.7716 kg

DRUGS (1)
  1. CIPROFLOXACIN HCL [Suspect]
     Indication: POST PROCEDURAL INFECTION
     Dates: start: 20081112, end: 20081118

REACTIONS (16)
  - ANOREXIA [None]
  - ANXIETY [None]
  - BURNING SENSATION [None]
  - DIZZINESS [None]
  - FATIGUE [None]
  - FEAR [None]
  - FEELING ABNORMAL [None]
  - GENERAL PHYSICAL HEALTH DETERIORATION [None]
  - INSOMNIA [None]
  - MALAISE [None]
  - NEUROPATHY PERIPHERAL [None]
  - PANIC REACTION [None]
  - PARAESTHESIA [None]
  - TINNITUS [None]
  - TONGUE ULCERATION [None]
  - WEIGHT DECREASED [None]
